FAERS Safety Report 9645805 (Version 4)
Quarter: 2014Q1

REPORT INFORMATION
  Report Type: Report from Study
  Country: JP (occurrence: JP)
  Receive Date: 20131025
  Receipt Date: 20140224
  Transmission Date: 20141002
  Serious: Yes (Death)
  Sender: FDA-Public Use
  Company Number: JP-PFIZER INC-2013303247

PATIENT
  Age: 56 Year
  Sex: Male
  Weight: 66 kg

DRUGS (11)
  1. ESTRACYT [Suspect]
     Indication: PROSTATE CANCER
     Dosage: 940.2 MG
     Route: 048
     Dates: start: 20060924, end: 20070310
  2. DOCETAXEL [Concomitant]
     Indication: PROSTATE CANCER
     Dosage: 35 MG/M2, CYCLIC (DAYS 2 AND 9, EVERY 21 DAYS)
     Route: 042
     Dates: start: 20060925, end: 20070307
  3. PREDNISOLONE [Concomitant]
     Indication: PROSTATE CANCER
     Dosage: 10 MG CYCLIC (DAILY LOW-DOSE, DAYS 1-21)
     Route: 048
     Dates: start: 20060925
  4. DEXAMETHASONE [Concomitant]
     Indication: PREMEDICATION
     Dosage: 8 MG, UNK
     Route: 042
  5. HYPEN [Concomitant]
     Dosage: UNK
     Dates: start: 20051209
  6. BIOFERMIN [Concomitant]
     Dosage: UNK
     Dates: start: 20060912
  7. MAGNESIUM OXIDE [Concomitant]
     Dosage: UNK
     Dates: start: 20060902
  8. MUCOSTA [Concomitant]
     Dosage: UNK
     Dates: start: 20060609
  9. PARIET [Concomitant]
     Dosage: UNK
     Dates: start: 20060609
  10. OXYCONTIN [Concomitant]
     Dosage: UNK
     Dates: start: 20060908
  11. ZOLADEX [Concomitant]
     Dosage: UNK
     Dates: start: 20040705, end: 20070307

REACTIONS (1)
  - Acute myocardial infarction [Fatal]
